FAERS Safety Report 7688788-8 (Version None)
Quarter: 2011Q3

REPORT INFORMATION
  Report Type: 
  Country: None (occurrence: None)
  Receive Date: 20110817
  Receipt Date: 20110808
  Transmission Date: 20111222
  Serious: Yes (Other)
  Sender: FDA-Public Use
  Company Number: BR-ASTRAZENECA-2011SE47561

PATIENT
  Age: 65 Year
  Sex: Female
  Weight: 47 kg

DRUGS (3)
  1. NEXIUM [Suspect]
     Indication: GASTROOESOPHAGEAL REFLUX DISEASE
     Route: 048
     Dates: start: 20110701
  2. CRESTOR [Suspect]
     Indication: HYPERCHOLESTEROLAEMIA
     Route: 048
     Dates: start: 20100101
  3. UNKNOWN [Suspect]
     Indication: OSTEOPENIA
     Route: 065
     Dates: start: 20110701, end: 20110701

REACTIONS (7)
  - BURSITIS [None]
  - DIARRHOEA [None]
  - WEIGHT DECREASED [None]
  - OSTEOPENIA [None]
  - DECREASED APPETITE [None]
  - GASTRIC POLYPS [None]
  - DIABETES MELLITUS INADEQUATE CONTROL [None]
